FAERS Safety Report 13713057 (Version 3)
Quarter: 2017Q3

REPORT INFORMATION
  Report Type: Spontaneous
  Country: JP (occurrence: JP)
  Receive Date: 20170704
  Receipt Date: 20170831
  Transmission Date: 20171127
  Serious: Yes (Other)
  Sender: FDA-Public Use
  Company Number: PHJP2017JP021441

PATIENT
  Age: 69 Year
  Sex: Male

DRUGS (2)
  1. ZOLEDRONATE [Suspect]
     Active Substance: ZOLEDRONIC ACID
     Indication: METASTASES TO BONE
     Dosage: UNK
     Route: 065
  2. SUNITINIB [Suspect]
     Active Substance: SUNITINIB
     Indication: RENAL CANCER
     Dosage: UNK
     Route: 065

REACTIONS (5)
  - Pain in jaw [Unknown]
  - Dental fistula [Unknown]
  - Osteonecrosis of jaw [Unknown]
  - Primary sequestrum [Unknown]
  - Wound complication [Unknown]

NARRATIVE: CASE EVENT DATE: 201607
